FAERS Safety Report 15036426 (Version 2)
Quarter: 2018Q2

REPORT INFORMATION
  Report Type: Spontaneous
  Country: US (occurrence: US)
  Receive Date: 20180620
  Receipt Date: 20180622
  Transmission Date: 20180711
  Serious: No
  Sender: FDA-Public Use
  Company Number: US-BAYER-2018-107897

PATIENT
  Sex: Male

DRUGS (1)
  1. ZEGERID OTC CAPSULES [Suspect]
     Active Substance: OMEPRAZOLE\SODIUM BICARBONATE
     Dosage: UNK
     Route: 048

REACTIONS (5)
  - Anxiety [Unknown]
  - Dizziness [Unknown]
  - Product appearance confusion [Unknown]
  - Wrong drug administered [Unknown]
  - Poor quality drug administered [Unknown]
